FAERS Safety Report 10906649 (Version 4)
Quarter: 2015Q2

REPORT INFORMATION
  Report Type: Report from Study
  Country: US (occurrence: US)
  Receive Date: 20150312
  Receipt Date: 20150619
  Transmission Date: 20150821
  Serious: Yes (Other)
  Sender: FDA-Public Use
  Company Number: US-BIOGENIDEC-2007BI004123

PATIENT
  Age: 31 Year
  Sex: Female

DRUGS (7)
  1. COENZYME Q10 [Concomitant]
     Active Substance: UBIDECARENONE
  2. TYSABRI [Suspect]
     Active Substance: NATALIZUMAB
     Indication: MULTIPLE SCLEROSIS
     Route: 042
     Dates: start: 20071210
  3. ZELNORM [Concomitant]
     Active Substance: TEGASEROD MALEATE
  4. TYSABRI [Suspect]
     Active Substance: NATALIZUMAB
     Indication: MULTIPLE SCLEROSIS
     Dosage: BASED ON ULTRASOUND.
     Route: 042
     Dates: start: 20060807, end: 20070130
  5. PRENATAL VITAMINS [Concomitant]
     Active Substance: VITAMINS
  6. LEXAPRO [Concomitant]
     Active Substance: ESCITALOPRAM OXALATE
  7. PROVIGIL [Concomitant]
     Active Substance: MODAFINIL

REACTIONS (4)
  - Foetal distress syndrome [Unknown]
  - Pre-eclampsia [Recovered/Resolved]
  - Prolonged labour [Unknown]
  - Maternal exposure during pregnancy [Recovered/Resolved]
